FAERS Safety Report 13451765 (Version 1)
Quarter: 2017Q2

REPORT INFORMATION
  Report Type: Spontaneous
  Country: US (occurrence: US)
  Receive Date: 20170418
  Receipt Date: 20170418
  Transmission Date: 20170830
  Serious: No
  Sender: FDA-Public Use
  Company Number: US-PFIZER INC-2017164483

PATIENT
  Age: 45 Year
  Sex: Female
  Weight: 122.4 kg

DRUGS (6)
  1. VITAMIN D [Concomitant]
     Active Substance: CHOLECALCIFEROL
     Dosage: 1.25 MG, UNK (1.25MG 3 TIMES A WEEK)
  2. LYRICA [Suspect]
     Active Substance: PREGABALIN
     Indication: NEURALGIA
  3. LYRICA [Suspect]
     Active Substance: PREGABALIN
     Indication: NEUROPATHY PERIPHERAL
     Dosage: 225 MG, 2X/DAY
     Route: 048
     Dates: start: 201609
  4. DICLOFENAC SOD EC [Concomitant]
     Indication: INFLAMMATION
     Dosage: 75 MG, 2X/DAY (75MG TWICE A DAY TABLETS BY MOUTH)
     Route: 048
  5. ZOLOFT [Concomitant]
     Active Substance: SERTRALINE HYDROCHLORIDE
     Indication: DEPRESSION
     Dosage: 100 MG, DAILY (100MG A DAY TABLET BY MOUTH)
     Route: 048
  6. PRILOSEC [Concomitant]
     Active Substance: OMEPRAZOLE MAGNESIUM
     Indication: GASTROOESOPHAGEAL REFLUX DISEASE
     Dosage: 40 MG, 2X/DAY (40MG TWICE A DAY TABLET BY MOUTH)
     Route: 048

REACTIONS (1)
  - Peripheral swelling [Recovering/Resolving]

NARRATIVE: CASE EVENT DATE: 201702
